FAERS Safety Report 13427457 (Version 2)
Quarter: 2017Q2

REPORT INFORMATION
  Report Type: Report from Study
  Country: US (occurrence: US)
  Receive Date: 20170411
  Receipt Date: 20170424
  Transmission Date: 20170830
  Serious: Yes (Hospitalization, Other)
  Sender: FDA-Public Use
  Company Number: US-BAYER-2016-171846

PATIENT
  Age: 82 Year
  Sex: Female
  Weight: 54.42 kg

DRUGS (17)
  1. ADEMPAS [Suspect]
     Active Substance: RIOCIGUAT
     Indication: PULMONARY ARTERIAL HYPERTENSION
     Dosage: UNK
  2. DILTIAZEM. [Concomitant]
     Active Substance: DILTIAZEM
     Dosage: UNK
  3. ADEMPAS [Suspect]
     Active Substance: RIOCIGUAT
     Indication: PULMONARY ARTERIAL HYPERTENSION
     Dosage: 2 MG, TID
     Route: 048
  4. ADEMPAS [Suspect]
     Active Substance: RIOCIGUAT
     Indication: PULMONARY ARTERIAL HYPERTENSION
     Dosage: 2 MG, TID
     Route: 048
  5. ADEMPAS [Suspect]
     Active Substance: RIOCIGUAT
     Indication: PULMONARY ARTERIAL HYPERTENSION
     Dosage: 2.5 MG, TID
     Route: 048
  6. ADEMPAS [Suspect]
     Active Substance: RIOCIGUAT
     Indication: PULMONARY ARTERIAL HYPERTENSION
     Dosage: 1.5 MG, TID
     Route: 048
  7. TYVASO [Concomitant]
     Active Substance: TREPROSTINIL
     Dosage: UNK, Q4HR
  8. ADEMPAS [Suspect]
     Active Substance: RIOCIGUAT
     Indication: PULMONARY ARTERIAL HYPERTENSION
     Dosage: 1.5 MG, TID
     Route: 048
  9. TYVASO [Concomitant]
     Active Substance: TREPROSTINIL
     Dosage: UNK
  10. COUMADIN [Concomitant]
     Active Substance: WARFARIN SODIUM
     Dosage: UNK
  11. UPTRAVI [Concomitant]
     Active Substance: SELEXIPAG
     Dosage: 400 ?G, BID
     Route: 048
  12. WARFARIN [Concomitant]
     Active Substance: WARFARIN
     Dosage: UNK
  13. ADEMPAS [Suspect]
     Active Substance: RIOCIGUAT
     Indication: PULMONARY ARTERIAL HYPERTENSION
     Dosage: UNK
     Dates: start: 20160812
  14. ADEMPAS [Suspect]
     Active Substance: RIOCIGUAT
     Indication: PULMONARY ARTERIAL HYPERTENSION
     Dosage: 0.5 MG, TID
     Route: 048
  15. LIPITOR [Concomitant]
     Active Substance: ATORVASTATIN CALCIUM
     Dosage: UNK
  16. ADEMPAS [Suspect]
     Active Substance: RIOCIGUAT
     Indication: PULMONARY ARTERIAL HYPERTENSION
     Dosage: 2.5 MG, TID
     Route: 048
  17. OPSUMIT [Concomitant]
     Active Substance: MACITENTAN
     Dosage: UNK
     Dates: end: 2016

REACTIONS (43)
  - Fall [Unknown]
  - Hospitalisation [Unknown]
  - Diarrhoea [Unknown]
  - Weight decreased [Not Recovered/Not Resolved]
  - Dizziness [Unknown]
  - Gastric disorder [Unknown]
  - Vomiting [Unknown]
  - Constipation [None]
  - Cholelithiasis [None]
  - Vomiting [None]
  - Gait disturbance [None]
  - International normalised ratio decreased [None]
  - Increased tendency to bruise [Unknown]
  - Transient ischaemic attack [Unknown]
  - Ulcer haemorrhage [Unknown]
  - Abdominal pain [None]
  - Abdominal pain [Unknown]
  - Nausea [Not Recovered/Not Resolved]
  - Bladder disorder [None]
  - Abdominal discomfort [Unknown]
  - Nausea [None]
  - International normalised ratio increased [None]
  - Blood pressure fluctuation [Unknown]
  - Decreased appetite [Unknown]
  - Vomiting [Not Recovered/Not Resolved]
  - Gallbladder non-functioning [Unknown]
  - Dyspnoea [None]
  - Bladder disorder [Unknown]
  - Headache [Unknown]
  - Abdominal discomfort [None]
  - Gout [None]
  - Nausea [None]
  - Incorrect drug administration duration [Unknown]
  - Anaemia [Unknown]
  - Headache [Not Recovered/Not Resolved]
  - Hypotension [Unknown]
  - Constipation [Unknown]
  - Dyspnoea [Unknown]
  - Nausea [Unknown]
  - Urinary tract infection [None]
  - Pain in extremity [None]
  - Incorrect dose administered [None]
  - Decreased appetite [None]

NARRATIVE: CASE EVENT DATE: 20160826
